FAERS Safety Report 17147011 (Version 1)
Quarter: 2019Q4

REPORT INFORMATION
  Report Type: Report from Study
  Country: MX (occurrence: MX)
  Receive Date: 20191212
  Receipt Date: 20191212
  Transmission Date: 20200122
  Serious: Yes (Hospitalization)
  Sender: FDA-Public Use
  Company Number: NVSC2019MX066858

PATIENT
  Sex: Female
  Weight: 98 kg

DRUGS (1)
  1. EXFORGE HCT [Suspect]
     Active Substance: AMLODIPINE BESYLATE\HYDROCHLOROTHIAZIDE\VALSARTAN
     Indication: BLOOD PRESSURE INCREASED
     Dosage: 1 DF, QD, 10MG, APPROXIMATELY 5 OR 6 YEARS AGO
     Route: 048
     Dates: start: 201911

REACTIONS (5)
  - Swelling face [Recovering/Resolving]
  - Eye swelling [Recovering/Resolving]
  - Weight decreased [Unknown]
  - Abdominal distension [Recovering/Resolving]
  - Swelling [Recovering/Resolving]
